FAERS Safety Report 24073472 (Version 1)
Quarter: 2024Q3

REPORT INFORMATION
  Report Type: Spontaneous
  Country: DE (occurrence: DE)
  Receive Date: 20240710
  Receipt Date: 20240710
  Transmission Date: 20241017
  Serious: Yes (Hospitalization, Other)
  Sender: BOEHRINGER INGELHEIM
  Company Number: DE-BoehringerIngelheim-2024-BI-029764

PATIENT
  Age: 58 Year
  Sex: Male
  Weight: 77 kg

DRUGS (5)
  1. OFEV [Suspect]
     Active Substance: NINTEDANIB
     Indication: Interstitial lung disease
     Route: 048
     Dates: end: 20240523
  2. IBUPROFEN [Concomitant]
     Active Substance: IBUPROFEN
     Indication: Analgesic therapy
     Route: 048
     Dates: start: 20240409, end: 20240607
  3. LERCANIDIPINE [Concomitant]
     Active Substance: LERCANIDIPINE
     Indication: Hypertension
     Route: 048
  4. SULFAMETHOXAZOLE [Concomitant]
     Active Substance: SULFAMETHOXAZOLE
     Indication: Immunosuppression
     Route: 048
  5. SULFAMETHOXAZOLE [Concomitant]
     Active Substance: SULFAMETHOXAZOLE
     Indication: Antibiotic therapy

REACTIONS (5)
  - Lung neoplasm malignant [Unknown]
  - Tracheal disorder [Recovering/Resolving]
  - Pneumothorax [Unknown]
  - Fistula [Recovering/Resolving]
  - Impaired healing [Unknown]

NARRATIVE: CASE EVENT DATE: 20240201
